FAERS Safety Report 4983665-5 (Version None)
Quarter: 2006Q2

REPORT INFORMATION
  Report Type: 
  Country: None (occurrence: None)
  Receive Date: 20060425
  Receipt Date: 20060425
  Transmission Date: 20061013
  Serious: Yes (Hospitalization)
  Sender: FDA-Public Use
  Company Number: None

PATIENT
  Sex: Male

DRUGS (3)
  1. IBUPROFEN [Suspect]
     Indication: PAIN
  2. LISINOPRIL [Suspect]
     Indication: HYPERTENSION
  3. POTASSIUM CHLORIDE [Suspect]

REACTIONS (5)
  - ASTHENIA [None]
  - DIALYSIS [None]
  - FATIGUE [None]
  - HYPERKALAEMIA [None]
  - RENAL FAILURE ACUTE [None]
